FAERS Safety Report 5808417-5 (Version None)
Quarter: 2008Q3

REPORT INFORMATION
  Report Type: 
  Country: None (occurrence: None)
  Receive Date: 20080714
  Receipt Date: 20080709
  Transmission Date: 20090109
  Serious: Yes (Death, Hospitalization)
  Sender: FDA-Public Use
  Company Number: PHHY2008CY13239

PATIENT
  Sex: Male

DRUGS (2)
  1. EXJADE [Suspect]
     Indication: IRON OVERLOAD
     Dosage: 20 MG/KG/DAY
     Dates: start: 20070701, end: 20071201
  2. EXJADE [Suspect]
     Dosage: 30MG/KG (FINAL DOSE)
     Dates: start: 20071201

REACTIONS (3)
  - CARDIAC FAILURE [None]
  - INFECTION [None]
  - PNEUMONIA [None]
